FAERS Safety Report 7788053-4 (Version None)
Quarter: 2011Q3

REPORT INFORMATION
  Report Type: 
  Country: None (occurrence: None)
  Receive Date: 20110930
  Receipt Date: 20110923
  Transmission Date: 20111222
  Serious: Yes (Hospitalization, Other)
  Sender: FDA-Public Use
  Company Number: US-ELI_LILLY_AND_COMPANY-US201109007602

PATIENT
  Sex: Female

DRUGS (3)
  1. HUMULIN 70/30 [Suspect]
     Dosage: UNK
     Dates: start: 19910101
  2. HUMULIN 70/30 [Suspect]
     Indication: DIABETES MELLITUS
     Dosage: UNK, PRN
  3. LANTUS [Concomitant]
     Dosage: UNK

REACTIONS (8)
  - DRY EYE [None]
  - LOSS OF CONSCIOUSNESS [None]
  - BREAST CANCER [None]
  - WEIGHT DECREASED [None]
  - CATARACT [None]
  - ANKLE OPERATION [None]
  - OXYGEN SATURATION DECREASED [None]
  - EYE DISORDER [None]
